FAERS Safety Report 10086161 (Version 2)
Quarter: 2014Q2

REPORT INFORMATION
  Report Type: Report from Study
  Country: US (occurrence: US)
  Receive Date: 20140418
  Receipt Date: 20140530
  Transmission Date: 20141212
  Serious: Yes (Other)
  Sender: FDA-Public Use
  Company Number: US-SA-2014SA045893

PATIENT
  Age: 51 Year
  Sex: Female

DRUGS (2)
  1. LANTUS [Suspect]
     Indication: PANCREATITIS
     Dosage: DOSE:12 UNIT(S)
     Route: 065
     Dates: start: 2012
  2. GLYBURIDE [Suspect]
     Indication: DIABETES MELLITUS
     Route: 065

REACTIONS (6)
  - Road traffic accident [Unknown]
  - Blood glucose increased [Recovered/Resolved]
  - Multiple injuries [Recovered/Resolved]
  - Drug dose omission [Unknown]
  - Brain injury [Unknown]
  - Visual impairment [Unknown]
